FAERS Safety Report 5033094-3 (Version None)
Quarter: 2006Q2

REPORT INFORMATION
  Report Type: 
  Country: None (occurrence: None)
  Receive Date: 20060504
  Receipt Date: 20060130
  Transmission Date: 20061013
  Serious: Yes (Hospitalization)
  Sender: FDA-Public Use
  Company Number: PHEH2005US13292

PATIENT
  Age: 61 Year
  Sex: Female

DRUGS (3)
  1. TEGRETOL [Suspect]
     Indication: TRIGEMINAL NEURALGIA
     Dosage: SEE IMAGE
  2. CARBATROL [Suspect]
     Indication: TRIGEMINAL NEURALGIA
  3. NEURONTIN [Suspect]
     Indication: TRIGEMINAL NEURALGIA

REACTIONS (4)
  - ABASIA [None]
  - EATING DISORDER SYMPTOM [None]
  - PAIN [None]
  - SPEECH DISORDER [None]
